FAERS Safety Report 7405470-2 (Version None)
Quarter: 2011Q2

REPORT INFORMATION
  Report Type: 
  Country: None (occurrence: None)
  Receive Date: 20110404
  Receipt Date: 20110330
  Transmission Date: 20111010
  Serious: Yes (Death)
  Sender: FDA-Public Use
  Company Number: 2011SP007043

PATIENT
  Sex: Male

DRUGS (1)
  1. NASONEX [Suspect]
     Indication: RHINITIS PERENNIAL
     Dosage: 200 MCG, QD, NAS
     Route: 045
     Dates: start: 20100915, end: 20100915

REACTIONS (1)
  - DEATH [None]
